FAERS Safety Report 24176827 (Version 1)
Quarter: 2024Q3

REPORT INFORMATION
  Report Type: Report from Study
  Country: IN (occurrence: IN)
  Receive Date: 20240806
  Receipt Date: 20240806
  Transmission Date: 20241017
  Serious: Yes (Death, Other)
  Sender: ROCHE
  Company Number: IN-ROCHE-10000038114

PATIENT

DRUGS (5)
  1. MYCOPHENOLATE MOFETIL [Suspect]
     Active Substance: MYCOPHENOLATE MOFETIL
     Indication: Prophylaxis against graft versus host disease
     Route: 065
  2. CYCLOSPORINE [Suspect]
     Active Substance: CYCLOSPORINE
     Indication: Prophylaxis against graft versus host disease
     Route: 065
  3. FLUDARABINE [Suspect]
     Active Substance: FLUDARABINE PHOSPHATE
     Indication: Prophylaxis against graft versus host disease
     Route: 065
  4. BUSULFAN [Suspect]
     Active Substance: BUSULFAN
     Indication: Prophylaxis against graft versus host disease
     Route: 042
  5. CYCLOPHOSPHAMIDE [Suspect]
     Active Substance: CYCLOPHOSPHAMIDE
     Indication: Prophylaxis against graft versus host disease
     Route: 065

REACTIONS (12)
  - BK virus infection [Fatal]
  - Sepsis [Fatal]
  - Cystitis haemorrhagic [Fatal]
  - Pneumonia fungal [Unknown]
  - Cytomegalovirus infection reactivation [Unknown]
  - Bacterial infection [Unknown]
  - Klebsiella infection [Unknown]
  - Escherichia infection [Unknown]
  - Acinetobacter infection [Unknown]
  - Pseudomonas infection [Unknown]
  - Cytomegalovirus infection [Unknown]
  - Fungal infection [Unknown]
